FAERS Safety Report 12537662 (Version 1)
Quarter: 2016Q3

REPORT INFORMATION
  Report Type: Spontaneous
  Country: KP (occurrence: KP)
  Receive Date: 20160707
  Receipt Date: 20160707
  Transmission Date: 20161109
  Serious: Yes (Other)
  Sender: FDA-Public Use
  Company Number: KP-SHENZHEN TECHDOW PHARMACEUTICAL CO. LTD-KR-2016TEC0000022

PATIENT
  Age: 53 Year
  Sex: Male

DRUGS (7)
  1. ACETYLSALICYLIC ACID [Concomitant]
     Active Substance: ASPIRIN
     Indication: ACUTE MYOCARDIAL INFARCTION
     Dosage: 300 MG, UNK
  2. ABCIXIMAB [Suspect]
     Active Substance: ABCIXIMAB
     Dosage: 0.25 MG/KG, BOLUS
     Route: 042
  3. ABCIXIMAB [Suspect]
     Active Substance: ABCIXIMAB
     Indication: VASCULAR STENT THROMBOSIS
     Dosage: 0.125 ?G/KG/MIN, CONTINUOUS INFUSION
     Route: 042
  4. CLOPIDOGREL [Concomitant]
     Active Substance: CLOPIDOGREL BISULFATE
     Indication: ACUTE MYOCARDIAL INFARCTION
     Dosage: 300 MG, UNK
  5. HEPARIN SODIUM INJECTION USP, PRESERVATIVE FREE [Suspect]
     Active Substance: HEPARIN SODIUM
     Indication: ACUTE MYOCARDIAL INFARCTION
     Dosage: 6 U/KG/HR
  6. HEPARIN SODIUM INJECTION USP, PRESERVATIVE FREE [Suspect]
     Active Substance: HEPARIN SODIUM
     Dosage: 860 U/H INFUSION
  7. HEPARIN SODIUM INJECTION USP, PRESERVATIVE FREE [Suspect]
     Active Substance: HEPARIN SODIUM
     Dosage: 4000 U BOLUS

REACTIONS (5)
  - Blood pressure decreased [Recovered/Resolved]
  - Hypovolaemic shock [Recovered/Resolved]
  - Puncture site haemorrhage [Recovered/Resolved]
  - Scrotal swelling [Recovered/Resolved]
  - Heart rate increased [Recovered/Resolved]
